FAERS Safety Report 23226317 (Version 1)
Quarter: 2023Q4

REPORT INFORMATION
  Report Type: Spontaneous
  Country: MX (occurrence: MX)
  Receive Date: 20231124
  Receipt Date: 20231124
  Transmission Date: 20240109
  Serious: Yes (Other)
  Sender: FDA-Public Use
  Company Number: MX-JNJFOC-20231167025

PATIENT
  Age: 50 Year
  Sex: Female

DRUGS (1)
  1. TRABECTEDIN [Suspect]
     Active Substance: TRABECTEDIN
     Indication: Sarcoma uterus
     Route: 065

REACTIONS (4)
  - Syncope [Unknown]
  - Fatigue [Unknown]
  - Hypotension [Unknown]
  - Drug ineffective [Unknown]
